FAERS Safety Report 14012469 (Version 2)
Quarter: 2017Q4

REPORT INFORMATION
  Report Type: Spontaneous
  Country: SE (occurrence: SE)
  Receive Date: 20170926
  Receipt Date: 20171023
  Transmission Date: 20180321
  Serious: Yes (Other)
  Sender: FDA-Public Use
  Company Number: SE-PFIZER INC-2017408619

PATIENT
  Age: 64 Year
  Sex: Female

DRUGS (5)
  1. SPIRIVA [Concomitant]
     Active Substance: TIOTROPIUM BROMIDE MONOHYDRATE
     Dosage: UNK
  2. BUFOMIX [Concomitant]
     Dosage: UNK
  3. CHAMPIX [Suspect]
     Active Substance: VARENICLINE TARTRATE
     Dosage: UNK
     Route: 048
     Dates: start: 20170830, end: 2017
  4. BUVENTOL EASYHALER [Concomitant]
     Active Substance: ALBUTEROL SULFATE
     Dosage: UNK, AS NEEDED
  5. OMEPRAZOLE. [Concomitant]
     Active Substance: OMEPRAZOLE
     Dosage: UNK, AS NEEDED

REACTIONS (4)
  - Bronchial obstruction [Recovered/Resolved]
  - Headache [Recovered/Resolved]
  - Rash [Recovered/Resolved]
  - Somnolence [Recovered/Resolved]

NARRATIVE: CASE EVENT DATE: 20170830
